FAERS Safety Report 7672718-9 (Version None)
Quarter: 2011Q3

REPORT INFORMATION
  Report Type: 
  Country: None (occurrence: None)
  Receive Date: 20110804
  Receipt Date: 20110720
  Transmission Date: 20111222
  Serious: Yes (Death, Hospitalization, Other)
  Sender: FDA-Public Use
  Company Number: 2011MA009218

PATIENT
  Age: 15 Month

DRUGS (3)
  1. FLUDARABINE PHOSPHATE [Suspect]
     Dosage: 150 MG/M**2
  2. TREOSULFAN (TREOSULFAN) [Suspect]
     Dosage: 42 G/M**2
  3. ALEMTUZUMAB (ALEMTUZUMAB) [Suspect]
     Dosage: 1.0 MG/ KG

REACTIONS (3)
  - ACUTE GRAFT VERSUS HOST DISEASE IN LIVER [None]
  - ACUTE GRAFT VERSUS HOST DISEASE IN INTESTINE [None]
  - CONVULSION [None]
